FAERS Safety Report 23575279 (Version 1)
Quarter: 2024Q1

REPORT INFORMATION
  Report Type: Spontaneous
  Country: US (occurrence: None)
  Receive Date: 20240227
  Receipt Date: 20240227
  Transmission Date: 20240410
  Serious: Yes (Other)
  Sender: FDA-Public Use
  Company Number: None

PATIENT
  Age: 35 Year
  Sex: Male
  Weight: 88.6 kg

DRUGS (4)
  1. VIVITROL [Suspect]
     Active Substance: NALTREXONE
     Indication: Drug use disorder
     Dosage: 4.2 ML EVERY 28 DAYS INTRAMUSCULAR?
     Route: 030
     Dates: start: 20240208
  2. Biktarvy 50-200-25 mg tablet [Concomitant]
     Dates: start: 20231121
  3. bupropion XL 150 mg tablet [Concomitant]
     Dates: start: 20240118
  4. hydroxyzine 25 mg tablet [Concomitant]
     Dates: start: 20240205

REACTIONS (5)
  - Injection site pain [None]
  - Abnormal sensation in eye [None]
  - Abscess limb [None]
  - Chills [None]
  - Vision blurred [None]

NARRATIVE: CASE EVENT DATE: 20240220
